FAERS Safety Report 8300306 (Version 5)
Quarter: 2013Q1

REPORT INFORMATION
  Report Type: Spontaneous
  Country: US (occurrence: US)
  Receive Date: 20111219
  Receipt Date: 20130225
  Transmission Date: 20140127
  Serious: Yes (Other)
  Sender: FDA-Public Use
  Company Number: US-ASTRAZENECA-2011SE15653

PATIENT
  Age: 61 Year
  Sex: Female

DRUGS (3)
  1. VIMOVO [Suspect]
     Dosage: UNKNOWN
     Route: 048
  2. CRESTOR [Suspect]
     Indication: TACHYCARDIA
     Route: 048
  3. NIASPAN [Concomitant]

REACTIONS (17)
  - Neoplasm malignant [Unknown]
  - Breast cancer female [Unknown]
  - Cerebrovascular accident [Unknown]
  - Visual impairment [Unknown]
  - Hypokinesia [Unknown]
  - Chest pain [Unknown]
  - Intervertebral disc degeneration [Unknown]
  - Cardiac disorder [Unknown]
  - Pain in extremity [Unknown]
  - Palpitations [Unknown]
  - Vision blurred [Unknown]
  - Headache [Unknown]
  - Malaise [Unknown]
  - Eye disorder [Unknown]
  - Erythema [Unknown]
  - Off label use [Unknown]
  - Intentional drug misuse [Unknown]
